FAERS Safety Report 17722962 (Version 2)
Quarter: 2020Q2

REPORT INFORMATION
  Report Type: Spontaneous
  Country: SK (occurrence: SK)
  Receive Date: 20200429
  Receipt Date: 20200605
  Transmission Date: 20200714
  Serious: Yes (Hospitalization, Other)
  Sender: FDA-Public Use
  Company Number: SK-ACCORD-179947

PATIENT
  Age: 31 Year
  Sex: Male

DRUGS (4)
  1. EPLERENONE. [Suspect]
     Active Substance: EPLERENONE
     Indication: SINUS TACHYCARDIA
     Dates: start: 201904
  2. PERINDOPRIL [Suspect]
     Active Substance: PERINDOPRIL
     Indication: SINUS TACHYCARDIA
     Dates: start: 201904
  3. FUROSEMIDE. [Suspect]
     Active Substance: FUROSEMIDE
     Indication: SINUS TACHYCARDIA
     Dates: start: 201904
  4. BISOPROLOL [Suspect]
     Active Substance: BISOPROLOL
     Indication: SINUS TACHYCARDIA
     Dates: start: 201904

REACTIONS (3)
  - Renal impairment [Recovered/Resolved]
  - Dizziness [Recovered/Resolved]
  - Circulatory collapse [Recovered/Resolved]
